FAERS Safety Report 20699200 (Version 1)
Quarter: 2022Q2

REPORT INFORMATION
  Report Type: Spontaneous
  Country: US (occurrence: None)
  Receive Date: 20220411
  Receipt Date: 20220411
  Transmission Date: 20220721
  Serious: Yes (Other)
  Sender: FDA-Public Use
  Company Number: None

PATIENT
  Age: 78 Year
  Sex: Male
  Weight: 142 kg

DRUGS (1)
  1. SULFUR HEXAFLUORIDE [Suspect]
     Active Substance: SULFUR HEXAFLUORIDE
     Indication: Ultrasound scan
     Dosage: FREQUENCY : ONCE;?
     Route: 042
     Dates: start: 20220324, end: 20220324

REACTIONS (11)
  - Contrast media reaction [None]
  - Dyspnoea [None]
  - Flushing [None]
  - Defaecation urgency [None]
  - Oxygen saturation decreased [None]
  - Heart rate increased [None]
  - Pharyngeal swelling [None]
  - Swelling face [None]
  - Pruritus [None]
  - Chest pain [None]
  - Anaphylactic reaction [None]

NARRATIVE: CASE EVENT DATE: 20220324
